FAERS Safety Report 20404211 (Version 1)
Quarter: 2022Q1

REPORT INFORMATION
  Report Type: Spontaneous
  Country: US (occurrence: None)
  Receive Date: 20220128
  Receipt Date: 20220128
  Transmission Date: 20220423
  Serious: No
  Sender: FDA-Public Use
  Company Number: None

PATIENT
  Age: 15 Year
  Sex: Male

DRUGS (2)
  1. NOVOSEVEN RT [Suspect]
     Active Substance: COAGULATION FACTOR VIIA RECOMBINANT HUMAN
     Indication: Factor IX deficiency
     Dosage: FREQUENCY : AS NEEDED;?
     Route: 042
     Dates: start: 20191004
  2. NOVOSEVEN RT [Suspect]
     Active Substance: COAGULATION FACTOR VIIA RECOMBINANT HUMAN
     Indication: Factor IX deficiency
     Dosage: FREQUENCY : AS NEEDED;?
     Route: 042
     Dates: start: 20191004

REACTIONS (2)
  - Haemorrhage [None]
  - Product use issue [None]

NARRATIVE: CASE EVENT DATE: 20220109
